FAERS Safety Report 6976142-3 (Version None)
Quarter: 2010Q3

REPORT INFORMATION
  Report Type: 
  Country: None (occurrence: None)
  Receive Date: 20100910
  Receipt Date: 20090416
  Transmission Date: 20110219
  Serious: No
  Sender: FDA-Public Use
  Company Number: US-WYE-H09006009

PATIENT
  Age: 38 Year
  Sex: Female
  Weight: 64.47 kg

DRUGS (3)
  1. PRISTIQ [Suspect]
     Indication: MAJOR DEPRESSION
     Route: 048
  2. KLONOPIN [Concomitant]
  3. SEROQUEL [Concomitant]

REACTIONS (1)
  - ABDOMINAL DISTENSION [None]
